FAERS Safety Report 13561036 (Version 1)
Quarter: 2017Q2

REPORT INFORMATION
  Report Type: Spontaneous
  Country: US (occurrence: US)
  Receive Date: 20170518
  Receipt Date: 20170518
  Transmission Date: 20170830
  Serious: No
  Sender: FDA-Public Use
  Company Number: US-ROCHE-23894

PATIENT
  Age: 49 Year
  Sex: Male

DRUGS (2)
  1. NAPROSYN [Suspect]
     Active Substance: NAPROXEN
     Indication: GOUT
     Route: 048
  2. CEFTIN [Interacting]
     Active Substance: CEFUROXIME AXETIL
     Indication: SINUSITIS
     Route: 048

REACTIONS (5)
  - Drug interaction [Unknown]
  - Erythema [Unknown]
  - Hypersensitivity [Unknown]
  - Urticaria [Unknown]
  - Rash [Unknown]

NARRATIVE: CASE EVENT DATE: 199303
